FAERS Safety Report 16959724 (Version 1)
Quarter: 2019Q4

REPORT INFORMATION
  Report Type: Spontaneous
  Country: IT (occurrence: IT)
  Receive Date: 20191025
  Receipt Date: 20191025
  Transmission Date: 20200122
  Serious: Yes (Disabling)
  Sender: FDA-Public Use
  Company Number: IT-TEVA-2019-IT-1127198

PATIENT
  Age: 31 Year
  Sex: Male
  Weight: 82 kg

DRUGS (1)
  1. FINASTERIDE. [Suspect]
     Active Substance: FINASTERIDE
     Indication: ALOPECIA
     Dosage: 1MG/ DAY
     Route: 048

REACTIONS (10)
  - Chronic fatigue syndrome [Recovering/Resolving]
  - Cognitive disorder [Recovering/Resolving]
  - Spermatozoa abnormal [Recovering/Resolving]
  - Erectile dysfunction [Recovering/Resolving]
  - Anxiety [Recovering/Resolving]
  - Social avoidant behaviour [Recovering/Resolving]
  - Suicidal ideation [Recovering/Resolving]
  - Loss of libido [Recovering/Resolving]
  - Job dissatisfaction [Recovering/Resolving]
  - Anger [Recovering/Resolving]

NARRATIVE: CASE EVENT DATE: 20191003
